FAERS Safety Report 5279769-2 (Version None)
Quarter: 2007Q1

REPORT INFORMATION
  Report Type: 
  Country: None (occurrence: None)
  Receive Date: 20061208
  Receipt Date: 20050607
  Transmission Date: 20070707
  Serious: No
  Sender: FDA-Public Use
  Company Number: 2005UW06928

PATIENT
  Age: 50 Year
  Sex: Female
  Weight: 61.2356 kg

DRUGS (7)
  1. CRESTOR [Suspect]
     Indication: BLOOD CHOLESTEROL INCREASED
     Dosage: 20 MG QD PO
     Route: 048
     Dates: start: 20050405, end: 20050502
  2. PREMARIN [Concomitant]
  3. SYNTHROID [Concomitant]
  4. WELLBUTRIN [Concomitant]
  5. PREVACID [Concomitant]
  6. ALTACE [Concomitant]
  7. INSULIN [Concomitant]

REACTIONS (8)
  - DIABETES MELLITUS [None]
  - DISORIENTATION [None]
  - FATIGUE [None]
  - MUSCLE SPASMS [None]
  - MUSCULAR WEAKNESS [None]
  - MYALGIA [None]
  - NAUSEA [None]
  - PAIN [None]
